FAERS Safety Report 5191547-1 (Version None)
Quarter: 2006Q4

REPORT INFORMATION
  Report Type: 
  Country: None (occurrence: None)
  Receive Date: 20061219
  Receipt Date: 20061204
  Transmission Date: 20070319
  Serious: Yes (Death, Life-Threatening)
  Sender: FDA-Public Use
  Company Number: 079

PATIENT
  Sex: Male

DRUGS (7)
  1. FAZACLO ODT [Suspect]
     Indication: SCHIZOPHRENIA
     Dosage: 100 MG PO DAILY
     Route: 048
     Dates: start: 20060925, end: 20061009
  2. GEODON [Concomitant]
  3. LAMICTAL [Concomitant]
  4. AMANTADINE HCL [Concomitant]
  5. FISH OIL [Concomitant]
  6. CHONDROITIN [Concomitant]
  7. GLUCOSAMINE [Concomitant]

REACTIONS (1)
  - DIFFICULT TO WEAN FROM VENTILATOR [None]
